FAERS Safety Report 9204128 (Version 1)
Quarter: 2013Q2

REPORT INFORMATION
  Report Type: Report from Study
  Country: US (occurrence: US)
  Receive Date: 20130402
  Receipt Date: 20130402
  Transmission Date: 20140414
  Serious: Yes (Other)
  Sender: FDA-Public Use
  Company Number: US-CELGENEUS-163-22393-13034362

PATIENT
  Sex: 0

DRUGS (2)
  1. ISTODAX [Suspect]
     Indication: CHRONIC LYMPHOCYTIC LEUKAEMIA
     Dosage: 8-10 MG/M2
     Route: 065
  2. BORTEZOMIB [Suspect]
     Indication: CHRONIC LYMPHOCYTIC LEUKAEMIA
     Dosage: 1.3-1.6 MG/M2
     Route: 040

REACTIONS (7)
  - Cytokine release syndrome [Unknown]
  - Neutropenia [Unknown]
  - Soft tissue infection [Unknown]
  - Fatigue [Unknown]
  - Anaemia [Unknown]
  - Leukopenia [Unknown]
  - Chronic lymphocytic leukaemia [Unknown]
